FAERS Safety Report 13243705 (Version 1)
Quarter: 2017Q1

REPORT INFORMATION
  Report Type: Spontaneous
  Country: US (occurrence: US)
  Receive Date: 20170217
  Receipt Date: 20170217
  Transmission Date: 20170428
  Serious: No
  Sender: FDA-Public Use
  Company Number: US-NOVOPROD-506267

PATIENT
  Age: 54 Year
  Sex: Female
  Weight: 97.51 kg

DRUGS (8)
  1. VICTOZA [Suspect]
     Active Substance: LIRAGLUTIDE
     Indication: DIABETES MELLITUS
     Route: 058
     Dates: end: 2016
  2. HUMIRA [Suspect]
     Active Substance: ADALIMUMAB
     Indication: PSORIASIS
     Dosage: 40 MG, QW
     Route: 058
     Dates: start: 201509, end: 201509
  3. HUMIRA [Suspect]
     Active Substance: ADALIMUMAB
     Dosage: 40 MG, QW
     Route: 058
     Dates: start: 201509, end: 20160309
  4. TOPROL XL [Concomitant]
     Active Substance: METOPROLOL SUCCINATE
     Indication: HYPERTENSION
     Dosage: UNK
     Route: 048
  5. HUMIRA [Suspect]
     Active Substance: ADALIMUMAB
     Indication: PSORIATIC ARTHROPATHY
     Dosage: 40 MG, EVERY TWO WEEKS
     Route: 058
     Dates: start: 20150722, end: 201509
  6. METOTREXATE [Concomitant]
     Active Substance: METHOTREXATE SODIUM
     Indication: PSORIATIC ARTHROPATHY
     Dosage: UNK
     Route: 048
     Dates: start: 201601
  7. LANTUS [Concomitant]
     Active Substance: INSULIN GLARGINE
     Indication: DIABETES MELLITUS
     Dosage: UNK
     Route: 058
  8. TRICOR                             /00090101/ [Concomitant]
     Active Substance: ADENOSINE
     Indication: BLOOD TRIGLYCERIDES INCREASED
     Dosage: UNK
     Route: 048

REACTIONS (9)
  - Dyschezia [Recovered/Resolved]
  - Anal pruritus [Recovered/Resolved]
  - Tremor [Unknown]
  - Injection site bruising [Unknown]
  - Injection site discolouration [Unknown]
  - Lung disorder [Unknown]
  - Hypersensitivity [Recovered/Resolved]
  - Arthralgia [Unknown]
  - Burning sensation [Recovered/Resolved]

NARRATIVE: CASE EVENT DATE: 2015
